FAERS Safety Report 10235422 (Version 4)
Quarter: 2014Q3

REPORT INFORMATION
  Report Type: Report from Study
  Country: JP (occurrence: JP)
  Receive Date: 20140613
  Receipt Date: 20140917
  Transmission Date: 20150326
  Serious: Yes (Death, Life-Threatening, Hospitalization)
  Sender: FDA-Public Use
  Company Number: JP-PFIZER INC-2014156102

PATIENT
  Age: 71 Year
  Sex: Male
  Weight: 59 kg

DRUGS (8)
  1. LYRICA [Concomitant]
     Active Substance: PREGABALIN
     Dosage: 75 MG, 4X/DAY
     Route: 048
     Dates: start: 20140321
  2. XALKORI [Suspect]
     Active Substance: CRIZOTINIB
     Indication: NON-SMALL CELL LUNG CANCER
     Dosage: 250 MG, 2X/DAY
     Route: 048
     Dates: start: 20140318, end: 20140323
  3. SENNOSIDE A+B [Concomitant]
     Active Substance: SENNOSIDES A AND B
     Dosage: 12 MG, AS NEEDED
     Route: 048
  4. OXINORM [Concomitant]
     Active Substance: OXYCODONE HYDROCHLORIDE
     Dosage: 10 MG, AS NEEDED
     Route: 048
  5. GOSHAJINKIGAN [Concomitant]
     Active Substance: HERBALS
     Dosage: 2.5 G, 3X/DAY
     Route: 048
     Dates: start: 20140321
  6. NEW LECICARBON [Concomitant]
     Active Substance: SODIUM BICARBONATE\SODIUM PHOSPHATE, MONOBASIC
     Dosage: UNK
     Route: 054
  7. TRAMCET [Concomitant]
     Active Substance: ACETAMINOPHEN\TRAMADOL
     Dosage: UNK
     Route: 048
     Dates: start: 20140321
  8. MAGMITT [Concomitant]
     Active Substance: MAGNESIUM OXIDE
     Dosage: 330 MG, 3X/DAY
     Route: 048

REACTIONS (2)
  - Interstitial lung disease [Recovering/Resolving]
  - Death [Fatal]

NARRATIVE: CASE EVENT DATE: 20140323
